FAERS Safety Report 25878285 (Version 1)
Quarter: 2025Q4

REPORT INFORMATION
  Report Type: Spontaneous
  Country: US (occurrence: None)
  Receive Date: 20251002
  Receipt Date: 20251002
  Transmission Date: 20260117
  Serious: Yes (Other)
  Sender: FDA-CTU
  Company Number: None

PATIENT
  Age: 35 Year
  Sex: Female
  Weight: 69.75 kg

DRUGS (1)
  1. PHENTERMINE [Suspect]
     Active Substance: PHENTERMINE
     Indication: Increased appetite
     Dosage: OTHER QUANTITY : 30 TABLET(S);?
     Route: 048

REACTIONS (6)
  - Burning sensation [None]
  - Pain in extremity [None]
  - Pain in extremity [None]
  - Hypoaesthesia [None]
  - Paraesthesia [None]
  - Pruritus [None]

NARRATIVE: CASE EVENT DATE: 20250404
